FAERS Safety Report 18873250 (Version 1)
Quarter: 2021Q1

REPORT INFORMATION
  Report Type: Spontaneous
  Country: PL (occurrence: PL)
  Receive Date: 20210210
  Receipt Date: 20210210
  Transmission Date: 20210420
  Serious: Yes (Other)
  Sender: FDA-Public Use
  Company Number: PL-ROCHE-2765047

PATIENT
  Sex: Female

DRUGS (1)
  1. TOCILIZUMAB. [Suspect]
     Active Substance: TOCILIZUMAB
     Indication: ARTHROPATHY
     Route: 065

REACTIONS (2)
  - Hepatic cirrhosis [Unknown]
  - Sjogren^s syndrome [Unknown]
